FAERS Safety Report 17757834 (Version 1)
Quarter: 2020Q2

REPORT INFORMATION
  Report Type: Report from Study
  Country: US (occurrence: US)
  Receive Date: 20200507
  Receipt Date: 20200507
  Transmission Date: 20200714
  Serious: Yes (Other)
  Sender: FDA-Public Use
  Company Number: US-AMGEN-USANI2019137289

PATIENT
  Age: 74 Year
  Sex: Female
  Weight: 64.5 kg

DRUGS (14)
  1. DEXAMETHASONE PHOSPHATE [Concomitant]
     Active Substance: DEXAMETHASONE PHOSPHATE
     Dosage: 12 MILLIGRAM
     Route: 042
     Dates: start: 20190722, end: 20190722
  2. LORATADINE. [Concomitant]
     Active Substance: LORATADINE
     Dosage: 10 MILLIGRAM 1 TAB STARTING DAY 1 PRIOR TO NEULASTA ADMIN
     Route: 048
     Dates: start: 20190701, end: 20190705
  3. FLUTICASONE. [Concomitant]
     Active Substance: FLUTICASONE
     Dosage: 50 MICROGRAM
     Route: 050
     Dates: start: 20170925
  4. DOCETAXEL. [Concomitant]
     Active Substance: DOCETAXEL
     Dosage: 128.2 MILLIGRAM
     Route: 042
     Dates: start: 20190701, end: 20190812
  5. PALONOSETRON. [Concomitant]
     Active Substance: PALONOSETRON HYDROCHLORIDE
     Dosage: 0.25 MILLIGRAM
     Route: 042
     Dates: start: 20190701, end: 20190722
  6. LEVOFLOXACIN. [Concomitant]
     Active Substance: LEVOFLOXACIN
     Dosage: 500 MILLIGRAM
     Route: 048
     Dates: start: 20190712, end: 20190722
  7. ALBUTEROL [SALBUTAMOL] [Concomitant]
     Active Substance: ALBUTEROL
     Indication: WHEEZING
     Dosage: 108 MICROGRAM, Q4H
     Route: 050
     Dates: start: 20170925
  8. ONDANSETRON [Concomitant]
     Active Substance: ONDANSETRON
     Indication: NAUSEA
     Dosage: 8 MILLIGRAM, TID AS NECESSARY
     Route: 048
     Dates: start: 20190617, end: 20191010
  9. PEGFILGRASTIM [Suspect]
     Active Substance: PEGFILGRASTIM
     Indication: NEUTROPENIA
     Dosage: 6 MILLIGRAM
     Route: 058
     Dates: start: 20190702
  10. CYCLOPHOSPHAMIDE. [Concomitant]
     Active Substance: CYCLOPHOSPHAMIDE
     Dosage: 1030 MILLIGRAM
     Route: 042
     Dates: start: 20190701, end: 20190812
  11. COMPAZINE [Concomitant]
     Active Substance: PROCHLORPERAZINE MALEATE
     Indication: NAUSEA
     Dosage: 10 MILLIGRAM, Q6H
     Route: 048
     Dates: start: 20190617, end: 20191010
  12. DEXAMETHASONE. [Concomitant]
     Active Substance: DEXAMETHASONE
     Dosage: 8 MILLIGRAM DAILY ON DAY 2 AND THREE AFTER CHEMOTHERAPY AND 12 MILLIGRAM
     Route: 042
     Dates: start: 20190617, end: 20190912
  13. BIMATOPROST. [Concomitant]
     Active Substance: BIMATOPROST
     Dosage: 0.03 UNK
     Route: 050
     Dates: start: 20160818
  14. ACETAMINOPHEN. [Concomitant]
     Active Substance: ACETAMINOPHEN
     Dosage: 650 MILLIGRAM
     Route: 048
     Dates: start: 20190529, end: 20190609

REACTIONS (1)
  - Dermatitis bullous [Recovered/Resolved]

NARRATIVE: CASE EVENT DATE: 20190731
